FAERS Safety Report 9161012 (Version 1)
Quarter: 2013Q1

REPORT INFORMATION
  Report Type: Other
  Country: US (occurrence: US)
  Receive Date: 20130313
  Receipt Date: 20130313
  Transmission Date: 20140127
  Serious: Yes (Other)
  Sender: FDA-Public Use
  Company Number: US-BRISTOL-MYERS SQUIBB COMPANY-17473323

PATIENT
  Age: 80 Year
  Sex: Male

DRUGS (4)
  1. ETOPOSIDE [Suspect]
     Indication: B-CELL LYMPHOMA RECURRENT
  2. CARBOPLATIN [Suspect]
     Indication: B-CELL LYMPHOMA RECURRENT
  3. IFOSFAMIDE [Suspect]
     Indication: B-CELL LYMPHOMA RECURRENT
  4. RITUXAN [Suspect]
     Indication: B-CELL LYMPHOMA RECURRENT

REACTIONS (3)
  - Leukaemia [Unknown]
  - Leukopenia [Unknown]
  - Off label use [Recovered/Resolved]
